FAERS Safety Report 13267306 (Version 4)
Quarter: 2017Q4

REPORT INFORMATION
  Report Type: Spontaneous
  Country: JP (occurrence: JP)
  Receive Date: 20170224
  Receipt Date: 20171031
  Transmission Date: 20180320
  Serious: Yes (Other)
  Sender: FDA-Public Use
  Company Number: JP-AMGEN-JPNSP2017029571

PATIENT
  Age: 82 Year
  Sex: Female

DRUGS (15)
  1. NEXIUM [Concomitant]
     Active Substance: ESOMEPRAZOLE MAGNESIUM
     Indication: OSTEOPOROSIS
     Dosage: 10 MG, QD
     Route: 065
  2. PRALIA [Suspect]
     Active Substance: DENOSUMAB
     Indication: OSTEOPOROSIS
     Dosage: 60 MG, UNK
     Route: 058
     Dates: start: 201404
  3. AZILVA [Concomitant]
     Active Substance: AZILSARTAN KAMEDOXOMIL
     Indication: HYPERTENSION
     Dosage: 20 MG, QD
     Route: 065
  4. SUNRYTHM [Concomitant]
     Active Substance: PILSICAINIDE HYDROCHLORIDE
     Indication: ATRIAL FIBRILLATION
     Dosage: 50 MG, TID
     Route: 065
  5. ALFAROL [Concomitant]
     Active Substance: ALFACALCIDOL
     Indication: OSTEOPOROSIS
     Dosage: UNK
     Route: 065
     Dates: start: 20100222
  6. PRALIA [Suspect]
     Active Substance: DENOSUMAB
     Indication: METASTASES TO BONE
  7. XARELTO [Concomitant]
     Active Substance: RIVAROXABAN
     Indication: ATRIAL FIBRILLATION
     Dosage: 10 MG, QD
     Route: 065
  8. MUCOSTA [Concomitant]
     Active Substance: REBAMIPIDE
     Indication: OSTEOPOROSIS
     Dosage: 100 MG, TID
     Route: 065
  9. GLAKAY [Concomitant]
     Active Substance: MENATETRENONE
     Indication: SPINAL OSTEOARTHRITIS
  10. ALFAROL [Concomitant]
     Active Substance: ALFACALCIDOL
     Indication: SPINAL OSTEOARTHRITIS
  11. ACTONEL [Suspect]
     Active Substance: RISEDRONATE SODIUM
     Indication: SPINAL OSTEOARTHRITIS
  12. BIOFERMIN [Concomitant]
     Active Substance: BACILLUS SUBTILIS\LACTOBACILLUS ACIDOPHILUS\STREPTOCOCCUS FAECAIS
     Indication: OSTEOPOROSIS
     Dosage: 1 DF, TID
     Route: 065
  13. ACTONEL [Suspect]
     Active Substance: RISEDRONATE SODIUM
     Indication: OSTEOPOROSIS
     Dosage: UNK
     Route: 065
     Dates: start: 20100222
  14. DENOTAS [Concomitant]
     Active Substance: CALCIUM CARBONATE\CHOLECALCIFEROL\MAGNESIUM CARBONATE
     Indication: OSTEOPOROSIS
     Dosage: UNK
     Route: 065
     Dates: start: 201404
  15. GLAKAY [Concomitant]
     Active Substance: MENATETRENONE
     Indication: OSTEOPOROSIS
     Dosage: UNK
     Route: 065
     Dates: start: 20100222

REACTIONS (1)
  - Osteonecrosis of jaw [Not Recovered/Not Resolved]

NARRATIVE: CASE EVENT DATE: 201409
